FAERS Safety Report 9176216 (Version 2)
Quarter: 2013Q2

REPORT INFORMATION
  Report Type: Spontaneous
  Country: JP (occurrence: JP)
  Receive Date: 20130321
  Receipt Date: 20130430
  Transmission Date: 20140414
  Serious: Yes (Hospitalization, Other)
  Sender: FDA-Public Use
  Company Number: JP-009507513-2011SP011303

PATIENT
  Age: 36 Year
  Sex: Female

DRUGS (11)
  1. REFLEX [Suspect]
     Indication: DEPRESSION
     Dosage: 15 MG, QD
     Route: 048
     Dates: start: 20100609, end: 20100622
  2. REFLEX [Interacting]
     Dosage: 30 MG, QD
     Route: 048
     Dates: start: 20100623, end: 201007
  3. PAROXETINE HYDROCHLORIDE [Concomitant]
     Indication: DEPRESSION
     Dosage: 10 MG, QD
     Route: 048
     Dates: start: 20091118, end: 20100316
  4. PAROXETINE HYDROCHLORIDE [Concomitant]
     Dosage: 20 MG, QD
     Route: 048
     Dates: start: 20100317, end: 20100525
  5. PAROXETINE HYDROCHLORIDE [Concomitant]
     Dosage: 40 MG, QD
     Route: 048
     Dates: start: 20100526, end: 20100608
  6. PAROXETINE HYDROCHLORIDE [Concomitant]
     Dosage: 20 MG, QD
     Route: 048
     Dates: start: 20100609, end: 20100622
  7. PAROXETINE HYDROCHLORIDE [Concomitant]
     Dosage: 10 MG, QD
     Route: 048
     Dates: start: 20100623
  8. BROTIZOLAM [Concomitant]
     Indication: SLEEP DISORDER
     Dosage: 0.25 MG, QD
     Route: 048
     Dates: start: 20091104
  9. BROTIZOLAM [Concomitant]
     Dosage: 0.25 MG,QD
     Route: 048
     Dates: start: 20100609
  10. BROTIZOLAM [Concomitant]
     Dosage: 0.25 MG,QD
     Route: 048
     Dates: start: 20100317
  11. FLUNITRAZEPAM [Concomitant]
     Indication: SLEEP DISORDER
     Dosage: 1 MG, UNK
     Route: 048
     Dates: start: 20100609, end: 20100623

REACTIONS (7)
  - Serotonin syndrome [Recovered/Resolved]
  - Drug interaction [Unknown]
  - Serotonin syndrome [Recovered/Resolved]
  - Hyperhidrosis [Unknown]
  - Pain in extremity [Unknown]
  - Dyskinesia [Unknown]
  - Eye disorder [Unknown]
